FAERS Safety Report 16429437 (Version 8)
Quarter: 2020Q2

REPORT INFORMATION
  Report Type: Report from Study
  Country: None (occurrence: CO)
  Receive Date: 20190614
  Receipt Date: 20200403
  Transmission Date: 20200713
  Serious: Yes (Hospitalization, Other)
  Sender: FDA-Public Use
  Company Number: CO-ABBVIE-18K-036-2536962-00

PATIENT
  Age: 62 Year
  Sex: Female
  Weight: 60 kg

DRUGS (6)
  1. HUMIRA [Suspect]
     Active Substance: ADALIMUMAB
     Indication: RHEUMATOID ARTHRITIS
     Route: 058
     Dates: start: 20121207, end: 20190425
  2. PREDNISOLONE. [Suspect]
     Active Substance: PREDNISOLONE
     Indication: PRODUCT USED FOR UNKNOWN INDICATION
     Route: 048
  3. CALCIUM [Concomitant]
     Active Substance: CALCIUM
     Indication: PRODUCT USED FOR UNKNOWN INDICATION
  4. LEFLUNOMIDE. [Concomitant]
     Active Substance: LEFLUNOMIDE
     Indication: PRODUCT USED FOR UNKNOWN INDICATION
  5. PREDNISOLONE. [Suspect]
     Active Substance: PREDNISOLONE
     Route: 048
  6. PREDNISOLONE. [Suspect]
     Active Substance: PREDNISOLONE
     Dosage: DOSE INCREASED
     Route: 048

REACTIONS (20)
  - Joint swelling [Unknown]
  - Peripheral swelling [Unknown]
  - Asthenia [Unknown]
  - Osteoarthritis [Unknown]
  - Swelling [Unknown]
  - Pyrexia [Recovering/Resolving]
  - Immunodeficiency [Unknown]
  - Urinary tract infection [Not Recovered/Not Resolved]
  - Pain in jaw [Not Recovered/Not Resolved]
  - Influenza [Unknown]
  - Weight decreased [Not Recovered/Not Resolved]
  - Rheumatoid arthritis [Not Recovered/Not Resolved]
  - Arthralgia [Not Recovered/Not Resolved]
  - Dysphonia [Unknown]
  - Bone pain [Recovering/Resolving]
  - Pain in extremity [Unknown]
  - Throat tightness [Unknown]
  - Chills [Recovering/Resolving]
  - Hypotension [Recovering/Resolving]
  - Neck pain [Not Recovered/Not Resolved]

NARRATIVE: CASE EVENT DATE: 2017
